FAERS Safety Report 12529817 (Version 1)
Quarter: 2016Q3

REPORT INFORMATION
  Report Type: Spontaneous
  Country: US (occurrence: None)
  Receive Date: 20160705
  Receipt Date: 20160705
  Transmission Date: 20161109
  Serious: Yes (Other)
  Sender: FDA-Public Use
  Company Number: None

PATIENT
  Age: 70 Year
  Sex: Female
  Weight: 180 kg

DRUGS (1)
  1. ANASTRAZOLE, 1MG [Suspect]
     Active Substance: ANASTROZOLE
     Indication: BREAST CANCER
     Dates: start: 20110901, end: 20140714

REACTIONS (7)
  - Fall [None]
  - Dizziness [None]
  - Impaired driving ability [None]
  - Confusional state [None]
  - Living in residential institution [None]
  - Muscular weakness [None]
  - Weight increased [None]

NARRATIVE: CASE EVENT DATE: 20111001
